FAERS Safety Report 25225167 (Version 1)
Quarter: 2025Q2

REPORT INFORMATION
  Report Type: Report from Study
  Country: US (occurrence: US)
  Receive Date: 20250422
  Receipt Date: 20250422
  Transmission Date: 20250717
  Serious: Yes (Hospitalization)
  Sender: JOHNSON AND JOHNSON
  Company Number: US-JNJFOC-20250126400

PATIENT
  Age: 81 Year

DRUGS (2)
  1. MACITENTAN\TADALAFIL [Suspect]
     Active Substance: MACITENTAN\TADALAFIL
     Indication: Pulmonary arterial hypertension
     Route: 048
     Dates: start: 202409
  2. UPTRAVI [Suspect]
     Active Substance: SELEXIPAG
     Indication: Pulmonary arterial hypertension
     Dates: start: 202409

REACTIONS (7)
  - Hospitalisation [Unknown]
  - Heart rate increased [Recovering/Resolving]
  - Pain in jaw [Recovering/Resolving]
  - Nasopharyngitis [Recovering/Resolving]
  - Vision blurred [Recovering/Resolving]
  - Lacrimation increased [Recovering/Resolving]
  - Product label issue [Not Recovered/Not Resolved]

NARRATIVE: CASE EVENT DATE: 20240901
